FAERS Safety Report 13463930 (Version 1)
Quarter: 2017Q2

REPORT INFORMATION
  Report Type: Spontaneous
  Country: US (occurrence: US)
  Receive Date: 20170420
  Receipt Date: 20170420
  Transmission Date: 20170830
  Serious: Yes (Hospitalization, Other)
  Sender: FDA-Public Use
  Company Number: US-ROCHE-709291

PATIENT
  Age: 21 Year
  Sex: Male
  Weight: 70.3 kg

DRUGS (2)
  1. ACCUTANE [Suspect]
     Active Substance: ISOTRETINOIN
     Indication: ACNE
     Route: 048
  2. ACCUTANE [Suspect]
     Active Substance: ISOTRETINOIN
     Route: 048
     Dates: start: 20030619, end: 20030719

REACTIONS (8)
  - Epistaxis [Recovering/Resolving]
  - Blood triglycerides increased [Recovered/Resolved]
  - Chapped lips [Unknown]
  - Dry eye [Recovering/Resolving]
  - Dry mouth [Recovering/Resolving]
  - Blood cholesterol increased [Recovered/Resolved]
  - Inflammatory bowel disease [Unknown]
  - Colitis ulcerative [Unknown]

NARRATIVE: CASE EVENT DATE: 20030219
